FAERS Safety Report 6990355 (Version 2)
Quarter: 2012Q4

REPORT INFORMATION
  Report Type: 
  Country: CA (occurrence: CA)
  Receive Date: 20090508
  Receipt Date: 20121107
  Transmission Date: 20130627
  Serious: Yes (Death, Hospitalization)
  Sender: FDA-Public Use
  Company Number: PHHY2008CA01602

PATIENT
  Sex: Female

DRUGS (4)
  1. SANDOSTATIN LAR [Suspect]
     Indication: CARCINOID TUMOUR
     Dosage: 40 mg, QMO
     Route: 030
     Dates: start: 20060213, end: 20090407
  2. SANDOSTATIN LAR [Suspect]
     Dosage: 30 mg, every 4 weeks
     Dates: start: 20060213
  3. MULTIVITAMINS [Concomitant]
  4. THYROXINE [Concomitant]

REACTIONS (8)
  - Death [Fatal]
  - Pleural effusion [Unknown]
  - Dyspnoea exertional [Unknown]
  - Herpes zoster [Unknown]
  - Abdominal discomfort [Unknown]
  - Flatulence [Unknown]
  - Injection site pain [Unknown]
  - Nausea [Unknown]
